FAERS Safety Report 10692347 (Version 1)
Quarter: 2015Q1

REPORT INFORMATION
  Report Type: Spontaneous
  Country: US (occurrence: None)
  Receive Date: 20150102
  Receipt Date: 20150102
  Transmission Date: 20150720
  Serious: Yes (Hospitalization, Other)
  Sender: FDA-Public Use
  Company Number: ADR-2014-02363

PATIENT
  Sex: Male

DRUGS (23)
  1. LITHIUM [Concomitant]
     Active Substance: LITHIUM CARBONATE
  2. KEPPRA [Concomitant]
     Active Substance: LEVETIRACETAM
  3. CLELBREX [Concomitant]
  4. FLOMAX [Concomitant]
     Active Substance: TAMSULOSIN HYDROCHLORIDE
  5. KETOPROFEN. [Concomitant]
     Active Substance: KETOPROFEN
  6. SIMVASTATIN. [Concomitant]
     Active Substance: SIMVASTATIN
  7. MIRALAX [Concomitant]
     Active Substance: POLYETHYLENE GLYCOL 3350
  8. SOMA [Concomitant]
     Active Substance: CARISOPRODOL
  9. MARINOL [Concomitant]
     Active Substance: DRONABINOL
  10. MORPHINE [Suspect]
     Active Substance: MORPHINE
     Indication: PAIN
     Dosage: 4.102 MG/DAY
  11. ALLEGRA [Concomitant]
     Active Substance: FEXOFENADINE HYDROCHLORIDE
  12. LEVOTHYROXINE [Concomitant]
     Active Substance: LEVOTHYROXINE
  13. VENLAFAXINE [Concomitant]
     Active Substance: VENLAFAXINE HYDROCHLORIDE
  14. ZOMIG [Concomitant]
     Active Substance: ZOLMITRIPTAN
  15. BUPIVACAINE [Suspect]
     Active Substance: BUPIVACAINE
     Dosage: 2.051 MG/DAY
  16. PROMETHAZINE [Concomitant]
     Active Substance: PROMETHAZINE\PROMETHAZINE HYDROCHLORIDE
  17. RELISTOR [Concomitant]
     Active Substance: METHYLNALTREXONE BROMIDE
  18. BACLOFEN. [Suspect]
     Active Substance: BACLOFEN
     Indication: PAIN
     Dosage: 61.52 MCG/DAY
  19. OXYCODONE [Concomitant]
     Active Substance: OXYCODONE
  20. SEROQUEL [Concomitant]
     Active Substance: QUETIAPINE FUMARATE
  21. PERCOCET [Concomitant]
     Active Substance: ACETAMINOPHEN\OXYCODONE HYDROCHLORIDE
  22. NEXIUM [Concomitant]
     Active Substance: ESOMEPRAZOLE MAGNESIUM
  23. MORPHINE [Concomitant]
     Active Substance: MORPHINE

REACTIONS (27)
  - Lethargy [None]
  - Fatigue [None]
  - Muscular weakness [None]
  - Abdominal pain [None]
  - Muscle spasticity [None]
  - Ataxia [None]
  - Asthenia [None]
  - Abnormal behaviour [None]
  - Coordination abnormal [None]
  - Dyspnoea [None]
  - Somnolence [None]
  - Depressed level of consciousness [None]
  - Malaise [None]
  - Nausea [None]
  - Dyskinesia [None]
  - Apnoea [None]
  - Stupor [None]
  - Hypoaesthesia [None]
  - Accidental overdose [None]
  - Acute respiratory failure [None]
  - Dizziness [None]
  - Decreased appetite [None]
  - Staring [None]
  - Medication error [None]
  - Pain in extremity [None]
  - Back pain [None]
  - Mental status changes [None]
